FAERS Safety Report 7866337-9 (Version None)
Quarter: 2011Q4

REPORT INFORMATION
  Report Type: 
  Country: None (occurrence: None)
  Receive Date: 20111028
  Receipt Date: 20110601
  Transmission Date: 20120403
  Serious: No
  Sender: FDA-Public Use
  Company Number: US-GLAXOSMITHKLINE-A0929885A

PATIENT
  Age: 71 Year
  Sex: Female

DRUGS (5)
  1. VENTOLIN [Concomitant]
  2. ZITHROMAX [Concomitant]
  3. DIOVAN [Concomitant]
  4. ADVAIR DISKUS 100/50 [Suspect]
     Indication: ASTHMA
     Dosage: 1PUFF TWICE PER DAY
     Route: 055
     Dates: start: 20101101, end: 20110301
  5. PREDNISONE [Concomitant]

REACTIONS (7)
  - NASOPHARYNGITIS [None]
  - DRUG INEFFECTIVE [None]
  - ILL-DEFINED DISORDER [None]
  - COUGH [None]
  - ADVERSE REACTION [None]
  - MUSCLE SPASMS [None]
  - DYSPHONIA [None]
